FAERS Safety Report 4845305-5 (Version None)
Quarter: 2005Q4

REPORT INFORMATION
  Report Type: 
  Country: None (occurrence: None)
  Receive Date: 20051129
  Receipt Date: 20051110
  Transmission Date: 20060501
  Serious: Yes (Hospitalization, Other)
  Sender: FDA-Public Use
  Company Number: USA0509106977

PATIENT
  Age: 81 Year
  Sex: Female
  Weight: 49 kg

DRUGS (4)
  1. FORTEO [Suspect]
     Indication: OSTEOPOROSIS
     Dates: start: 20050701
  2. LEXAPRO [Concomitant]
  3. AMITRIPTYLINE HCL [Concomitant]
  4. FORTEO PEN, 250MCG/ML (3ML) (FORTEO PEN 250MCG/ML) (3ML)) PEN, DISPOSA [Concomitant]

REACTIONS (5)
  - DRUG LEVEL INCREASED [None]
  - EATING DISORDER [None]
  - FALL [None]
  - FEMORAL NECK FRACTURE [None]
  - PHARMACEUTICAL PRODUCT COMPLAINT [None]
